FAERS Safety Report 9085679 (Version 1)
Quarter: 2013Q1

REPORT INFORMATION
  Report Type: Report from Study
  Country: US (occurrence: US)
  Receive Date: 20130131
  Receipt Date: 20130131
  Transmission Date: 20140127
  Serious: Yes (Hospitalization, Other)
  Sender: FDA-Public Use
  Company Number: US-SHIRE-SPV1-2008-02843

PATIENT
  Age: 8 Year
  Sex: Male
  Weight: 27.7 kg

DRUGS (4)
  1. IDURSULFASE [Suspect]
     Indication: MUCOPOLYSACCHARIDOSIS II
     Dosage: 12 MG, 1X/WEEK
     Route: 041
     Dates: start: 20070306
  2. IDURSULFASE [Suspect]
     Dosage: 13.85 MG, 1X/WEEK
     Route: 041
  3. LORATADINE [Concomitant]
     Indication: PREMEDICATION
     Dosage: 10 MG, UNKNOWN
     Route: 048
     Dates: start: 20070313
  4. PARACETAMOL [Concomitant]
     Indication: PREMEDICATION
     Dosage: 260 MG, UNKNOWN
     Route: 065
     Dates: start: 20070306

REACTIONS (3)
  - Convulsion [Recovered/Resolved with Sequelae]
  - Hydrocephalus [Unknown]
  - Condition aggravated [Unknown]
